FAERS Safety Report 5522281-3 (Version None)
Quarter: 2007Q4

REPORT INFORMATION
  Report Type: 
  Country: None (occurrence: None)
  Receive Date: 20071120
  Receipt Date: 20071112
  Transmission Date: 20080405
  Serious: No
  Sender: FDA-Public Use
  Company Number: US-ELI_LILLY_AND_COMPANY-US200709003046

PATIENT
  Sex: Female

DRUGS (3)
  1. EVISTA [Suspect]
  2. FORTEO [Suspect]
     Indication: OSTEOPOROSIS
     Dosage: UNK, EACH EVENING
     Dates: start: 20060101
  3. FORTEO [Suspect]
     Dosage: UNK, EACH MORNING

REACTIONS (13)
  - BONE DENSITY DECREASED [None]
  - DYSPHAGIA [None]
  - DYSPNOEA [None]
  - FEAR [None]
  - FEELING HOT [None]
  - MULTIPLE INJURIES [None]
  - RASH [None]
  - RASH ERYTHEMATOUS [None]
  - ROAD TRAFFIC ACCIDENT [None]
  - SENSITIVITY OF TEETH [None]
  - SKIN DISORDER [None]
  - SOMNOLENCE [None]
  - TOOTH ABSCESS [None]
